FAERS Safety Report 11976489 (Version 1)
Quarter: 2016Q1

REPORT INFORMATION
  Report Type: Spontaneous
  Country: US (occurrence: US)
  Receive Date: 20160129
  Receipt Date: 20160129
  Transmission Date: 20160526
  Serious: Yes (Hospitalization)
  Sender: FDA-Public Use
  Company Number: US-UNITED THERAPEUTICS-UNT-2016-000163

PATIENT
  Age: 56 Year
  Sex: Female
  Weight: 90.25 kg

DRUGS (1)
  1. REMODULIN [Suspect]
     Active Substance: TREPROSTINIL
     Indication: PULMONARY ARTERIAL HYPERTENSION
     Dosage: 0.065 ?G/KG, CONTINUING
     Route: 041
     Dates: start: 20140515

REACTIONS (4)
  - Fluid retention [Unknown]
  - Pneumonia [Unknown]
  - Depressed level of consciousness [Unknown]
  - Hypoxia [Unknown]

NARRATIVE: CASE EVENT DATE: 20160104
